FAERS Safety Report 13931329 (Version 3)
Quarter: 2018Q1

REPORT INFORMATION
  Report Type: Spontaneous
  Country: JP (occurrence: JP)
  Receive Date: 20170903
  Receipt Date: 20180116
  Transmission Date: 20180508
  Serious: Yes (Hospitalization, Other)
  Sender: FDA-Public Use
  Company Number: JP-MYLANLABS-2017M1054404

PATIENT
  Age: 17 Month
  Sex: Female

DRUGS (11)
  1. PRANLUKAST [Suspect]
     Active Substance: PRANLUKAST
     Indication: COUGH
     Dosage: UNK
     Route: 065
  2. AZITHROMYCIN ANHYDROUS. [Suspect]
     Active Substance: AZITHROMYCIN ANHYDROUS
     Indication: RESPIRATORY SYMPTOM
  3. PRANLUKAST [Concomitant]
     Active Substance: PRANLUKAST
     Indication: RESPIRATORY SYMPTOM
     Dosage: ??
     Route: 048
     Dates: start: 20150918, end: 20150928
  4. BUDESONIDE. [Concomitant]
     Active Substance: BUDESONIDE
     Indication: RESPIRATORY SYMPTOM
     Dosage: ??
     Route: 048
     Dates: start: 20150924, end: 20150928
  5. AZITHROMYCIN ANHYDROUS. [Suspect]
     Active Substance: AZITHROMYCIN ANHYDROUS
     Indication: PYREXIA
     Route: 065
  6. AMBROXOL HYDROCHLORIDE [Concomitant]
     Active Substance: AMBROXOL HYDROCHLORIDE
     Indication: RESPIRATORY SYMPTOM
     Dosage: ??
     Route: 048
     Dates: start: 20150918, end: 20150928
  7. BIFIDOBACTERIUM LACTIS [Concomitant]
     Active Substance: BIFIDOBACTERIUM ANIMALIS LACTIS
     Indication: RESPIRATORY SYMPTOM
     Dosage: ??
     Route: 048
     Dates: start: 20150918, end: 20150928
  8. AZITHROMYCIN ANHYDROUS. [Suspect]
     Active Substance: AZITHROMYCIN ANHYDROUS
     Indication: COUGH
     Dosage: ??
     Route: 048
     Dates: start: 20150925, end: 20150928
  9. MUCODYNE [Concomitant]
     Active Substance: CARBOCYSTEINE
     Indication: PRODUCT USED FOR UNKNOWN INDICATION
     Dosage: UNK
     Route: 065
     Dates: start: 20150918
  10. PRANLUKAST [Suspect]
     Active Substance: PRANLUKAST
     Indication: PYREXIA
     Dosage: UNK
     Route: 065
  11. TIPEPIDINE HIBENZATE [Concomitant]
     Active Substance: TIPEPIDINE HIBENZATE
     Indication: RESPIRATORY SYMPTOM
     Dosage: ??
     Route: 048
     Dates: start: 20150918, end: 20150928

REACTIONS (8)
  - Hypoxia [Recovering/Resolving]
  - Drug reaction with eosinophilia and systemic symptoms [Recovering/Resolving]
  - Infection reactivation [Recovered/Resolved]
  - BK virus infection [Recovered/Resolved]
  - Rash [Recovering/Resolving]
  - Pyrexia [Recovering/Resolving]
  - Cytomegalovirus infection [Recovered/Resolved]
  - Multiple organ dysfunction syndrome [Recovered/Resolved]
